FAERS Safety Report 8540851-5 (Version None)
Quarter: 2012Q3

REPORT INFORMATION
  Report Type: 
  Country: None (occurrence: None)
  Receive Date: 20120726
  Receipt Date: 20120717
  Transmission Date: 20120928
  Serious: Yes (Hospitalization)
  Sender: FDA-Public Use
  Company Number: IT-NAPPMUNDI-GBR-2012-0011020

PATIENT
  Sex: Female

DRUGS (8)
  1. BISOPROLOL FUMARATE [Concomitant]
     Indication: HYPERTENSION
     Dosage: 1.25 MG/ML, UNK
     Route: 048
  2. MS CONTIN [Suspect]
     Indication: PAIN
     Dosage: 20 MG, DAILY
     Route: 048
     Dates: start: 20110101, end: 20120619
  3. ORAMORPH SR [Suspect]
     Indication: PAIN
     Dosage: 12 DROP, DAILY
     Route: 048
     Dates: start: 20120101, end: 20120619
  4. GABAPENTIN [Concomitant]
     Indication: NEUROPATHY PERIPHERAL
     Dosage: 300 MG, UNK
     Route: 048
  5. OMEPRAZOLE [Concomitant]
     Indication: DUODENAL ULCER
     Dosage: 20 MG, UNK
     Route: 048
  6. FEMARA [Concomitant]
     Indication: BREAST CANCER
     Dosage: 2.5 MG, UNK
     Route: 048
  7. FERROFOLIN [Concomitant]
     Indication: ANAEMIA
     Route: 048
  8. CLONAZEPAM [Concomitant]
     Indication: NEURALGIA
     Dosage: 2.5 MG/ML 7 DROP, UNK
     Route: 048

REACTIONS (3)
  - RENAL FAILURE ACUTE [None]
  - LETHARGY [None]
  - RESPIRATORY DEPRESSION [None]
